FAERS Safety Report 20629754 (Version 2)
Quarter: 2022Q2

REPORT INFORMATION
  Report Type: Report from Study
  Country: KR (occurrence: KR)
  Receive Date: 20220323
  Receipt Date: 20220406
  Transmission Date: 20220721
  Serious: Yes (Death)
  Sender: FDA-Public Use
  Company Number: KR-ABBVIE-22K-090-4328184-00

PATIENT
  Age: 88 Year
  Sex: Male
  Weight: 60 kg

DRUGS (39)
  1. VENCLEXTA [Suspect]
     Active Substance: VENETOCLAX
     Indication: Chronic lymphocytic leukaemia
     Route: 048
     Dates: start: 20211127, end: 20211204
  2. VENCLEXTA [Suspect]
     Active Substance: VENETOCLAX
     Route: 048
     Dates: start: 20211207, end: 20211216
  3. VENCLEXTA [Suspect]
     Active Substance: VENETOCLAX
     Route: 048
     Dates: start: 20211217, end: 20211231
  4. VENCLEXTA [Suspect]
     Active Substance: VENETOCLAX
     Route: 048
     Dates: start: 20220113, end: 20220120
  5. VENCLEXTA [Suspect]
     Active Substance: VENETOCLAX
     Route: 048
     Dates: start: 20211204, end: 20211206
  6. VENCLEXTA [Suspect]
     Active Substance: VENETOCLAX
     Route: 048
     Dates: start: 20220121, end: 20220123
  7. VENCLEXTA [Suspect]
     Active Substance: VENETOCLAX
     Route: 048
     Dates: start: 20220124, end: 20220128
  8. VENCLEXTA [Suspect]
     Active Substance: VENETOCLAX
     Route: 048
     Dates: start: 20220129, end: 20220203
  9. VENCLEXTA [Suspect]
     Active Substance: VENETOCLAX
     Route: 048
     Dates: start: 20220204, end: 20220307
  10. ALLOPURINOL [Concomitant]
     Active Substance: ALLOPURINOL
     Indication: Premedication
     Route: 048
     Dates: start: 20211127
  11. PROPRANOLOL HYDROCHLORIDE [Concomitant]
     Active Substance: PROPRANOLOL HYDROCHLORIDE
     Indication: Hypertension
     Route: 048
     Dates: start: 20211127, end: 20220115
  12. DIAZEPAM DAEWON [Concomitant]
     Indication: Tremor
     Route: 048
     Dates: start: 20211127
  13. NORVASC [Concomitant]
     Active Substance: AMLODIPINE BESYLATE
     Indication: Hypertension
     Route: 048
     Dates: start: 20211127, end: 20220115
  14. AVODART [Concomitant]
     Active Substance: DUTASTERIDE
     Indication: Benign prostatic hyperplasia
     Route: 048
     Dates: start: 20211127
  15. RABEPRAZOLE SODIUM [Concomitant]
     Active Substance: RABEPRAZOLE SODIUM
     Indication: Gastrooesophageal reflux disease
     Route: 048
     Dates: start: 20211127, end: 20211207
  16. THRUPASS ODT [Concomitant]
     Indication: Benign prostatic hyperplasia
     Route: 048
     Dates: start: 20211127
  17. MINIRIN [Concomitant]
     Active Substance: DESMOPRESSIN ACETATE
     Indication: Benign prostatic hyperplasia
     Route: 048
     Dates: start: 20211127, end: 20211207
  18. LEVODROPROPIZINE [Concomitant]
     Active Substance: LEVODROPROPIZINE
     Indication: Pleural effusion
     Route: 048
     Dates: start: 20211127
  19. ERDOSTEINE [Concomitant]
     Active Substance: ERDOSTEINE
     Indication: Pleural effusion
     Route: 048
     Dates: start: 20211127
  20. CODEINE PHOSPHATE [Concomitant]
     Active Substance: CODEINE PHOSPHATE
     Indication: Pleural effusion
     Route: 048
     Dates: start: 20211127
  21. AMBRO [Concomitant]
     Indication: Pleural effusion
     Route: 042
     Dates: start: 20211127, end: 20211201
  22. PACETA [Concomitant]
     Indication: Pleural effusion
     Dosage: 1VIAL
     Route: 042
     Dates: start: 20211127
  23. BENZYDAMINE HYDROCHLORIDE [Concomitant]
     Active Substance: BENZYDAMINE HYDROCHLORIDE
     Indication: Prophylaxis
     Dosage: 1 BOTTLE
     Route: 060
     Dates: start: 20211127
  24. BARACLUDE [Concomitant]
     Active Substance: ENTECAVIR
     Indication: Antiviral prophylaxis
     Route: 048
     Dates: start: 20220113
  25. TACENOL 8HOURS ER [Concomitant]
     Indication: Premedication
     Route: 048
     Dates: start: 20220113, end: 20220113
  26. DEXAMETHASONE [Concomitant]
     Active Substance: DEXAMETHASONE
     Indication: Premedication
     Route: 042
     Dates: start: 20220113, end: 20220113
  27. CHLORPHENIRAMINE MALEATE HUONS [Concomitant]
     Indication: Premedication
     Dates: start: 20220113, end: 20220113
  28. SULFAMETHOXAZOLE\TRIMETHOPRIM [Concomitant]
     Active Substance: SULFAMETHOXAZOLE\TRIMETHOPRIM
     Indication: Pleural effusion
     Route: 048
     Dates: start: 20220113
  29. REBAMIPIDE [Concomitant]
     Active Substance: REBAMIPIDE
     Indication: Gastrooesophageal reflux disease
     Route: 048
     Dates: start: 20220113
  30. SPORANOX [Concomitant]
     Active Substance: ITRACONAZOLE
     Indication: Pleural effusion
     Route: 048
     Dates: start: 20220113
  31. SODIUM BICARBONATE [Concomitant]
     Active Substance: SODIUM BICARBONATE
     Indication: Premedication
     Route: 042
     Dates: start: 20220210, end: 20220210
  32. DEXAMETHASONE DAEWON [Concomitant]
     Indication: Premedication
     Route: 042
     Dates: start: 20220210, end: 20220210
  33. MABTHERA [Concomitant]
     Active Substance: RITUXIMAB
     Indication: Chemotherapy
     Route: 048
     Dates: start: 20220211
  34. MAGMIL S [Concomitant]
     Indication: Chemotherapy
     Route: 048
     Dates: start: 20220211
  35. COLDAEWON COUGH [Concomitant]
     Indication: Pleural effusion
     Route: 048
     Dates: start: 20220305
  36. OXYCODONE HYDROCHLORIDE [Concomitant]
     Active Substance: OXYCODONE HYDROCHLORIDE
     Indication: Pleural effusion
     Route: 048
     Dates: start: 20220225
  37. OXYCODONE HYDROCHLORIDE [Concomitant]
     Active Substance: OXYCODONE HYDROCHLORIDE
     Indication: Pleural effusion
     Route: 042
     Dates: start: 20220304, end: 20220305
  38. FENTANYL [Concomitant]
     Active Substance: FENTANYL
     Indication: Pleural effusion
     Dosage: 12MCG/H 5.25A+NBSP
     Route: 062
     Dates: start: 20220305, end: 20220307
  39. UBACSIN [Concomitant]
     Indication: Pleural effusion
     Dosage: 8VIALS
     Route: 042
     Dates: start: 20220306, end: 20220306

REACTIONS (1)
  - COVID-19 pneumonia [Fatal]

NARRATIVE: CASE EVENT DATE: 20220307
